FAERS Safety Report 4890594-4 (Version None)
Quarter: 2006Q1

REPORT INFORMATION
  Report Type: 
  Country: None (occurrence: None)
  Receive Date: 20060123
  Receipt Date: 20060110
  Transmission Date: 20060701
  Serious: Yes (Other)
  Sender: FDA-Public Use
  Company Number: US200512002555

PATIENT
  Age: 78 Year
  Sex: Female
  Weight: 62.1 kg

DRUGS (11)
  1. FORTEO [Suspect]
     Indication: OSTEOPOROSIS
     Dates: start: 20051001
  2. FORTEO [Concomitant]
  3. AMIODARONE HCL [Concomitant]
  4. DIGOXIN [Concomitant]
  5. COREG [Concomitant]
  6. LASIX [Concomitant]
  7. ALDACTONE [Concomitant]
  8. SYNTHROID [Concomitant]
  9. BENTYL [Concomitant]
  10. ASPIRIN [Concomitant]
  11. ISMO [Concomitant]

REACTIONS (1)
  - ATRIAL FIBRILLATION [None]
